FAERS Safety Report 4955288-5 (Version None)
Quarter: 2006Q1

REPORT INFORMATION
  Report Type: 
  Country: None (occurrence: None)
  Receive Date: 20060328
  Receipt Date: 20060103
  Transmission Date: 20060701
  Serious: Yes (Death)
  Sender: FDA-Public Use
  Company Number: FR-BRISTOL-MYERS SQUIBB COMPANY-13235486

PATIENT
  Age: 27 Year
  Sex: Male
  Weight: 63 kg

DRUGS (2)
  1. ABILIFY [Suspect]
     Indication: SCHIZOPHRENIA
     Dosage: ABILIFY: 10MG QD ON 03-JUN-2005 AND D/C BY END OF JUNE FOR 2 MONTHS;RESTARTED ON 22-SEP-2005 10MG QD
     Route: 048
     Dates: start: 20050603, end: 20050601
  2. ZYPREXA [Suspect]
     Indication: SCHIZOPHRENIA
     Route: 048
     Dates: start: 20050922

REACTIONS (1)
  - COMPLETED SUICIDE [None]
